FAERS Safety Report 10947933 (Version 6)
Quarter: 2017Q3

REPORT INFORMATION
  Report Type: Report from Study
  Country: BR (occurrence: BR)
  Receive Date: 20150324
  Receipt Date: 20170908
  Transmission Date: 20171127
  Serious: Yes (Death, Hospitalization, Disabling, Other)
  Sender: FDA-Public Use
  Company Number: BR-ROCHE-1555246

PATIENT
  Age: 83 Year
  Sex: Female
  Weight: 48 kg

DRUGS (9)
  1. PANTOPRAZOLE [Concomitant]
     Active Substance: PANTOPRAZOLE
     Indication: GASTRIC DISORDER
  2. VITAMIN D3 [Concomitant]
     Active Substance: CHOLECALCIFEROL
  3. CLOPIDOGREL [Concomitant]
     Active Substance: CLOPIDOGREL BISULFATE
  4. VELIJA [Concomitant]
     Active Substance: DULOXETINE HYDROCHLORIDE
  5. SIMVASTATIN. [Concomitant]
     Active Substance: SIMVASTATIN
  6. CILOSTAZOL. [Concomitant]
     Active Substance: CILOSTAZOL
     Indication: CARDIOVASCULAR DISORDER
  7. SILICON [Concomitant]
     Active Substance: SILICON
     Indication: GASTROINTESTINAL DISORDER
  8. MABTHERA [Suspect]
     Active Substance: RITUXIMAB
     Indication: RHEUMATOID ARTHRITIS
     Route: 042
     Dates: start: 20140401, end: 20161224
  9. SYNTHROID [Concomitant]
     Active Substance: LEVOTHYROXINE SODIUM
     Indication: GASTRIC DISORDER
     Route: 065

REACTIONS (13)
  - Upper limb fracture [Recovering/Resolving]
  - Renal failure [Fatal]
  - Arthralgia [Unknown]
  - Gait inability [Recovering/Resolving]
  - Anaemia [Unknown]
  - Skin discolouration [Not Recovered/Not Resolved]
  - Cystitis [Recovering/Resolving]
  - Hypersensitivity [Unknown]
  - Pelvic fracture [Recovering/Resolving]
  - Gait inability [Not Recovered/Not Resolved]
  - Rib fracture [Recovering/Resolving]
  - Fall [Unknown]
  - Gastrointestinal disorder [Fatal]

NARRATIVE: CASE EVENT DATE: 201503
